FAERS Safety Report 4845516-9 (Version None)
Quarter: 2005Q4

REPORT INFORMATION
  Report Type: 
  Country: None (occurrence: None)
  Receive Date: 20051205
  Receipt Date: 20030207
  Transmission Date: 20060501
  Serious: Yes (Life-Threatening)
  Sender: FDA-Public Use
  Company Number: PHRM2003FR00715

PATIENT
  Age: 58 Year
  Sex: Male
  Weight: 82 kg

DRUGS (2)
  1. NISIS [Suspect]
     Indication: HYPERTENSION
     Dosage: 80 MG/DAY
     Route: 048
     Dates: start: 20020805, end: 20020826
  2. ELISOR [Concomitant]
     Indication: HYPERTENSION
     Route: 048
     Dates: start: 20020805

REACTIONS (3)
  - DROP ATTACKS [None]
  - ROAD TRAFFIC ACCIDENT [None]
  - SOMNOLENCE [None]
